FAERS Safety Report 15711179 (Version 1)
Quarter: 2018Q4

REPORT INFORMATION
  Report Type: Spontaneous
  Country: US (occurrence: US)
  Receive Date: 20181211
  Receipt Date: 20181211
  Transmission Date: 20190205
  Serious: Yes (Other)
  Sender: FDA-Public Use
  Company Number: PHEH2018US051879

PATIENT

DRUGS (1)
  1. SANDOSTATIN [Suspect]
     Active Substance: OCTREOTIDE ACETATE
     Indication: CARCINOID TUMOUR
     Dosage: UNK UNK, QMO
     Route: 065

REACTIONS (6)
  - Loss of consciousness [Unknown]
  - Small intestinal obstruction [Unknown]
  - Abdominal pain [Unknown]
  - Intestinal metastasis [Unknown]
  - Vomiting [Unknown]
  - Malaise [Unknown]
